FAERS Safety Report 13704655 (Version 1)
Quarter: 2017Q2

REPORT INFORMATION
  Report Type: Spontaneous
  Country: US (occurrence: US)
  Receive Date: 20170629
  Receipt Date: 20170629
  Transmission Date: 20170830
  Serious: Yes (Other)
  Sender: FDA-Public Use
  Company Number: None

PATIENT
  Age: 56 Year
  Sex: Female
  Weight: 60.3 kg

DRUGS (6)
  1. FLONASE [Concomitant]
     Active Substance: FLUTICASONE PROPIONATE
  2. ASMANEX HFA [Suspect]
     Active Substance: MOMETASONE FUROATE
     Indication: ASTHMA
     Dosage: QUANTITY:100 PUFF(S);?
     Route: 055
  3. ZANTAC [Concomitant]
     Active Substance: RANITIDINE HYDROCHLORIDE
  4. Q-VAR INHALER [Concomitant]
  5. ZYRTEC [Concomitant]
     Active Substance: CETIRIZINE HYDROCHLORIDE
  6. FEMRING [Concomitant]
     Active Substance: ESTRADIOL ACETATE

REACTIONS (5)
  - Anger [None]
  - Fear [None]
  - Mood swings [None]
  - Emotional disorder [None]
  - Depression [None]

NARRATIVE: CASE EVENT DATE: 20170628
